FAERS Safety Report 4934250-2 (Version None)
Quarter: 2006Q1

REPORT INFORMATION
  Report Type: 
  Country: None (occurrence: None)
  Receive Date: 20060303
  Receipt Date: 20060217
  Transmission Date: 20060701
  Serious: Yes (Hospitalization)
  Sender: FDA-Public Use
  Company Number: CLOF-10173

PATIENT
  Age: 71 Year
  Sex: Female

DRUGS (4)
  1. CLOFARABINE [Suspect]
     Indication: ACUTE MYELOID LEUKAEMIA
     Dosage: 30 MG/M2 QD X 5 IV
     Route: 042
     Dates: start: 20050513, end: 20050517
  2. ACYCLOVIR [Concomitant]
  3. SEPTRIM [Concomitant]
  4. ALLOPURINOL [Concomitant]

REACTIONS (2)
  - NEUTROPENIC SEPSIS [None]
  - RENAL FAILURE ACUTE [None]
